FAERS Safety Report 4501290-7 (Version None)
Quarter: 2004Q4

REPORT INFORMATION
  Report Type: 
  Country: None (occurrence: None)
  Receive Date: 20041110
  Receipt Date: 20041028
  Transmission Date: 20050328
  Serious: Yes (Other)
  Sender: FDA-Public Use
  Company Number: 2004242183CL

PATIENT
  Age: 71 Year
  Sex: Female
  Weight: 65 kg

DRUGS (4)
  1. BEXTRA [Suspect]
     Indication: POSTOPERATIVE ANALGESIA
     Dosage: 40 MG, QD, ORAL
     Route: 048
     Dates: start: 20031101, end: 20031101
  2. CARBAMAZEPINE [Concomitant]
  3. TETRAZEPAM [Concomitant]
  4. EUTIROX (LEVOTHYROXINE) [Concomitant]

REACTIONS (2)
  - DERMATITIS [None]
  - ERYTHEMA MULTIFORME [None]
